FAERS Safety Report 9418997 (Version 2)
Quarter: 2014Q1

REPORT INFORMATION
  Report Type: Spontaneous
  Country: BR (occurrence: BR)
  Receive Date: 20130725
  Receipt Date: 20140204
  Transmission Date: 20141002
  Serious: Yes (Other)
  Sender: FDA-Public Use
  Company Number: PHHY2013BR077060

PATIENT
  Age: 69 Year
  Sex: Male
  Weight: 70 kg

DRUGS (2)
  1. DIOVAN TRIPLE [Suspect]
     Indication: HYPERTENSION
     Dosage: 1 DF (VAL 160 MG, AMLO 5 MG AND HCTZ 25 MG), QD (IN MORNING)
     Route: 048
  2. DIOVAN TRIPLE [Suspect]
     Dosage: 1 DF (VAL 160 MG, AMLO 5 MG AND HCTZ 25 MG), QD (IN MORNING)
     Route: 048

REACTIONS (7)
  - Haemorrhoids [Recovering/Resolving]
  - Anal haemorrhage [Recovering/Resolving]
  - Blood pressure decreased [Not Recovered/Not Resolved]
  - Malaise [Unknown]
  - Somnolence [Recovered/Resolved]
  - Hyperhidrosis [Recovered/Resolved]
  - Discomfort [Unknown]
